FAERS Safety Report 6812555-8 (Version None)
Quarter: 2010Q3

REPORT INFORMATION
  Report Type: 
  Country: None (occurrence: None)
  Receive Date: 20100701
  Receipt Date: 20100621
  Transmission Date: 20110219
  Serious: Yes (Hospitalization, Disabling, Other)
  Sender: FDA-Public Use
  Company Number: JP-PFIZER INC-2010067878

PATIENT
  Age: 48 Year
  Sex: Female

DRUGS (3)
  1. ZOLOFT [Suspect]
     Indication: DEPRESSION
     Dosage: 25MG/DAY
     Route: 048
     Dates: start: 20090305
  2. ZOLOFT [Suspect]
     Dosage: 75MG/DAY
     Route: 048
     Dates: end: 20100602
  3. VEGETAMIN [Suspect]
     Indication: INSOMNIA
     Dosage: UNK
     Route: 048
     Dates: start: 20000712

REACTIONS (2)
  - LOSS OF CONSCIOUSNESS [None]
  - URINARY RETENTION [None]
